FAERS Safety Report 17633507 (Version 1)
Quarter: 2020Q2

REPORT INFORMATION
  Report Type: Other
  Country: FR (occurrence: FR)
  Receive Date: 20200407
  Receipt Date: 20200407
  Transmission Date: 20200713
  Serious: Yes (Death, Hospitalization)
  Sender: FDA-Public Use
  Company Number: FR-CELLTRION INC.-2020FR021270

PATIENT

DRUGS (16)
  1. PREGABALINE [Concomitant]
     Active Substance: PREGABALIN
     Dosage: 150 MG, DAILY
     Route: 048
     Dates: start: 20191122
  2. FILGRASTIM [Concomitant]
     Active Substance: FILGRASTIM
     Dosage: 1 MG, DAILY
     Route: 042
     Dates: start: 20191122
  3. INSULINE [INSULIN PORCINE] [Concomitant]
     Active Substance: INSULIN PORK\INSULIN PURIFIED PORK
     Dosage: UNK
     Route: 065
     Dates: start: 20191122
  4. MORPHINE [Concomitant]
     Active Substance: MORPHINE
     Dosage: 2 MG, DAILY
     Route: 042
     Dates: start: 20191122
  5. PANTOPRAZOLE [Concomitant]
     Active Substance: PANTOPRAZOLE
     Dosage: 40 MG, DAILY
     Route: 042
     Dates: start: 20191122
  6. BACTRIM [Concomitant]
     Active Substance: SULFAMETHOXAZOLE\TRIMETHOPRIM
     Dosage: 1 DF, DAILY
     Route: 042
     Dates: start: 20191122
  7. DOXORUBICINE [DOXORUBICIN] [Suspect]
     Active Substance: DOXORUBICIN
     Indication: BURKITT^S LYMPHOMA
     Dosage: UNK
     Route: 065
     Dates: start: 20191005
  8. RITUXIMAB (UNKNOWN) [Suspect]
     Active Substance: RITUXIMAB
     Indication: BURKITT^S LYMPHOMA
     Dosage: UNK
     Route: 065
     Dates: start: 20191005
  9. PRIMPERAN [Concomitant]
     Active Substance: METOCLOPRAMIDE HYDROCHLORIDE
     Dosage: 40 MG, DAILY
     Route: 042
     Dates: start: 20191122
  10. METHOTREXATE. [Suspect]
     Active Substance: METHOTREXATE
     Indication: BURKITT^S LYMPHOMA
     Dosage: UNK
     Route: 065
     Dates: start: 20191003
  11. VINCRISTINE [Suspect]
     Active Substance: VINCRISTINE
     Indication: BURKITT^S LYMPHOMA
     Dosage: UNK
     Route: 065
     Dates: start: 20191005
  12. CYCLOPHOSPHAMIDE. [Suspect]
     Active Substance: CYCLOPHOSPHAMIDE
     Indication: BURKITT^S LYMPHOMA
     Dosage: UNK
     Route: 065
     Dates: start: 20191005
  13. ZOPHREN [ONDANSETRON HYDROCHLORIDE] [Concomitant]
     Active Substance: ONDANSETRON
     Dosage: 12 MG, DAILY
     Route: 042
     Dates: start: 20191122
  14. ALVITYL [ASCORBIC ACID;BIOTIN;CALCIUM PANTOTHENATE;COLECALCIFEROL;CYAN [Concomitant]
     Dosage: 1 DF, DAILY
     Route: 048
     Dates: start: 20191122
  15. ACICLOVIR [Concomitant]
     Active Substance: ACYCLOVIR
     Dosage: 750 MG, DAILY
     Route: 042
     Dates: start: 20191122
  16. PREDNISONE. [Suspect]
     Active Substance: PREDNISONE
     Indication: BURKITT^S LYMPHOMA
     Dosage: UNK
     Route: 065
     Dates: start: 20191005

REACTIONS (5)
  - Lung disorder [Fatal]
  - Product use in unapproved indication [Unknown]
  - Bone marrow failure [Fatal]
  - Septic shock [Fatal]
  - Burkitt^s lymphoma [Fatal]

NARRATIVE: CASE EVENT DATE: 20191005
